FAERS Safety Report 18347618 (Version 3)
Quarter: 2021Q4

REPORT INFORMATION
  Report Type: Report from Study
  Country: US (occurrence: US)
  Receive Date: 20201006
  Receipt Date: 20211224
  Transmission Date: 20220303
  Serious: No
  Sender: FDA-Public Use
  Company Number: NVSC2020US268573

PATIENT
  Age: 14 Year
  Sex: Male

DRUGS (2)
  1. ILARIS [Suspect]
     Active Substance: CANAKINUMAB
     Indication: Still^s disease
     Dosage: 150 MG, EVERY 4 WEEKS
     Route: 058
     Dates: start: 20161006
  2. ILARIS [Suspect]
     Active Substance: CANAKINUMAB
     Dosage: UNK
     Route: 065
     Dates: start: 20201002

REACTIONS (2)
  - Inappropriate schedule of product administration [Unknown]
  - Urticaria [Unknown]

NARRATIVE: CASE EVENT DATE: 20201002
